FAERS Safety Report 4494000-3 (Version None)
Quarter: 2004Q4

REPORT INFORMATION
  Report Type: 
  Country: None (occurrence: None)
  Receive Date: 20041105
  Receipt Date: 20041029
  Transmission Date: 20050328
  Serious: Yes (Other)
  Sender: FDA-Public Use
  Company Number: US-JNJFOC-20041100249

PATIENT
  Age: 57 Year
  Sex: Female

DRUGS (3)
  1. DURAGESIC [Suspect]
     Route: 062
  2. MS CONTIN [Concomitant]
     Dosage: AS NECESSARY
  3. TYLENOL [Concomitant]

REACTIONS (4)
  - HYPOTENSION [None]
  - MOANING [None]
  - OVERDOSE [None]
  - PARALYSIS [None]
